FAERS Safety Report 5065301-5 (Version None)
Quarter: 2006Q3

REPORT INFORMATION
  Report Type: 
  Country: None (occurrence: None)
  Receive Date: 20060731
  Receipt Date: 20060720
  Transmission Date: 20061208
  Serious: Yes (Other)
  Sender: FDA-Public Use
  Company Number: US-JNJFOC-20060404092

PATIENT
  Sex: Female
  Weight: 43.09 kg

DRUGS (3)
  1. REMICADE [Suspect]
     Indication: RHEUMATOID ARTHRITIS
     Route: 042
  2. PREVICID [Concomitant]
     Indication: GASTROOESOPHAGEAL REFLUX DISEASE
  3. PLAQUENIL [Concomitant]
     Indication: EYE DISORDER

REACTIONS (3)
  - BACK PAIN [None]
  - LUNG NEOPLASM [None]
  - NEOPLASM [None]
